FAERS Safety Report 8291760-0 (Version None)
Quarter: 2012Q2

REPORT INFORMATION
  Report Type: 
  Country: None (occurrence: None)
  Receive Date: 20120417
  Receipt Date: 20110613
  Transmission Date: 20120825
  Serious: No
  Sender: FDA-Public Use
  Company Number: US-ASTRAZENECA-2011SE36263

PATIENT
  Age: 22 Year
  Sex: Male
  Weight: 83.9 kg

DRUGS (3)
  1. ATIVAN [Concomitant]
  2. PEPCID [Concomitant]
  3. NEXIUM [Suspect]
     Indication: GASTROOESOPHAGEAL REFLUX DISEASE
     Route: 048
     Dates: start: 20040101, end: 20110610

REACTIONS (5)
  - HYPERTENSION [None]
  - WEIGHT DECREASED [None]
  - TACHYCARDIA [None]
  - OFF LABEL USE [None]
  - FLUSHING [None]
